FAERS Safety Report 15573944 (Version 2)
Quarter: 2021Q3

REPORT INFORMATION
  Report Type: Spontaneous
  Country: US (occurrence: US)
  Receive Date: 20181101
  Receipt Date: 20210813
  Transmission Date: 20211014
  Serious: Yes (Hospitalization, Disabling)
  Sender: FDA-Public Use
  Company Number: US-TEVA-2018-US-971101

PATIENT
  Age: 41 Year
  Sex: Female
  Weight: 77.56 kg

DRUGS (60)
  1. DOCETAXEL HOSPIRA [Suspect]
     Active Substance: DOCETAXEL
     Indication: BREAST CANCER FEMALE
     Dosage: STRENGTH: 75MG/M2; DOSE: 141MG
     Route: 042
     Dates: start: 20130121, end: 20130607
  2. DOCETAXEL ACCORD [Suspect]
     Active Substance: DOCETAXEL
     Indication: BREAST CANCER FEMALE
     Dosage: STRENGTH: 75MG/M2; DOSE: 141MG
     Route: 042
     Dates: start: 20130121, end: 20130607
  3. HEPARIN [Concomitant]
     Active Substance: HEPARIN SODIUM
     Route: 042
     Dates: start: 20130507, end: 20130507
  4. PEGFILGRASTIM [Concomitant]
     Active Substance: PEGFILGRASTIM
     Route: 058
     Dates: start: 20130215, end: 20130215
  5. DOCETAXEL SANDOZ [Suspect]
     Active Substance: DOCETAXEL
     Indication: BREAST CANCER FEMALE
     Dosage: STRENGTH: 75MG/M2; DOSE: 141MG
     Route: 042
     Dates: start: 20130121, end: 20130607
  6. DOCETAXEL SANOFI [Suspect]
     Active Substance: DOCETAXEL
     Indication: BREAST CANCER FEMALE
     Dosage: STRENGTH: 75MG/M2; DOSE: 141MG
     Route: 042
     Dates: start: 20130121, end: 20130607
  7. HEPARIN [Concomitant]
     Active Substance: HEPARIN SODIUM
     Route: 042
     Dates: start: 20130121
  8. FOSAPREPITANT DIMEGTUMINE [Concomitant]
     Dosage: 150 MILLIGRAM DAILY;
     Route: 042
     Dates: start: 20130326, end: 20130326
  9. FOSAPREPITANT DIMEGTUMINE [Concomitant]
     Dosage: 150 MILLIGRAM DAILY;
     Route: 042
     Dates: start: 20130507, end: 20130507
  10. DEXAMETHASONE. [Concomitant]
     Active Substance: DEXAMETHASONE
     Route: 042
     Dates: start: 20130326, end: 20130326
  11. DIPHENHYDRAMINE. [Concomitant]
     Active Substance: DIPHENHYDRAMINE
     Route: 042
     Dates: start: 20130214, end: 20130214
  12. FAMOTIDINE. [Concomitant]
     Active Substance: FAMOTIDINE
     Route: 042
     Dates: start: 20130214, end: 20130214
  13. CYCLOPHOSPHAMIDE. [Concomitant]
     Active Substance: CYCLOPHOSPHAMIDE
     Dosage: STRENGTH: 500MG/M2; DOSE: 905MG
     Route: 042
     Dates: start: 20130305, end: 20130305
  14. CYCLOPHOSPHAMIDE. [Concomitant]
     Active Substance: CYCLOPHOSPHAMIDE
     Dosage: STRENGTH: 500MG/M2; DOSE: 905MG
     Route: 042
     Dates: start: 20130507, end: 20130507
  15. DOCEFREZ [Suspect]
     Active Substance: DOCETAXEL ANHYDROUS
     Indication: BREAST CANCER FEMALE
     Dosage: STRENGTH: 75MG/M2; DOSE: 141MG
     Route: 042
     Dates: start: 20130121, end: 20130607
  16. DOCEFREZ [Suspect]
     Active Substance: DOCETAXEL ANHYDROUS
     Indication: BREAST CANCER FEMALE
     Dosage: STRENGTH: 75MG/M2; DOSE: 141MG
     Route: 042
     Dates: start: 20130121, end: 20130607
  17. HEPARIN [Concomitant]
     Active Substance: HEPARIN SODIUM
     Route: 042
     Dates: start: 20130214, end: 20130215
  18. FOSAPREPITANT DIMEGTUMINE [Concomitant]
     Dosage: 150 MILLIGRAM DAILY;
     Route: 042
     Dates: start: 20130214, end: 20130214
  19. ONDANSETRON [Concomitant]
     Active Substance: ONDANSETRON
     Route: 042
     Dates: start: 20130305, end: 20130305
  20. DEXAMETHASONE. [Concomitant]
     Active Substance: DEXAMETHASONE
     Route: 042
     Dates: start: 20130214, end: 20130214
  21. DEXAMETHASONE. [Concomitant]
     Active Substance: DEXAMETHASONE
     Route: 042
     Dates: start: 20130507, end: 20130507
  22. DIPHENHYDRAMINE. [Concomitant]
     Active Substance: DIPHENHYDRAMINE
     Route: 042
     Dates: start: 20130121, end: 20130121
  23. DIPHENHYDRAMINE. [Concomitant]
     Active Substance: DIPHENHYDRAMINE
     Route: 042
     Dates: start: 20130305, end: 20130305
  24. FAMOTIDINE. [Concomitant]
     Active Substance: FAMOTIDINE
     Route: 042
     Dates: start: 20130121, end: 20130121
  25. FAMOTIDINE. [Concomitant]
     Active Substance: FAMOTIDINE
     Route: 042
     Dates: start: 20130305, end: 20130305
  26. DOXORUBICIN [Concomitant]
     Active Substance: DOXORUBICIN
     Dosage: STRENGTH: 50MG/M2; DOSE: 91MG
     Route: 042
     Dates: start: 20130214, end: 20130214
  27. DOXORUBICIN [Concomitant]
     Active Substance: DOXORUBICIN
     Dosage: STRENGTH: 50MG/M2; DOSE: 91MG
     Route: 042
     Dates: start: 20130416, end: 20130416
  28. DOXORUBICIN [Concomitant]
     Active Substance: DOXORUBICIN
     Dosage: STRENGTH: 50MG/M2; DOSE: 91MG
     Route: 042
     Dates: start: 20130507, end: 20130507
  29. CYCLOPHOSPHAMIDE. [Concomitant]
     Active Substance: CYCLOPHOSPHAMIDE
     Dosage: STRENGTH: 500MG/M2; DOSE: 905MG
     Route: 042
     Dates: start: 20130326, end: 20130326
  30. ALTEPLASE. [Concomitant]
     Active Substance: ALTEPLASE
     Route: 042
     Dates: start: 20130214, end: 20130214
  31. ONDANSETRON [Concomitant]
     Active Substance: ONDANSETRON
     Route: 042
     Dates: start: 20130214, end: 20130214
  32. DEXAMETHASONE. [Concomitant]
     Active Substance: DEXAMETHASONE
     Route: 042
     Dates: start: 20130305, end: 20130305
  33. CYCLOPHOSPHAMIDE. [Concomitant]
     Active Substance: CYCLOPHOSPHAMIDE
     Dosage: STRENGTH: 500MG/M2; DOSE: 905MG
     Route: 042
     Dates: start: 20130214, end: 20130214
  34. HEPARIN [Concomitant]
     Active Substance: HEPARIN SODIUM
     Route: 042
     Dates: start: 20130305, end: 20130306
  35. FOSAPREPITANT DIMEGTUMINE [Concomitant]
     Dosage: 150 MILLIGRAM DAILY;
     Route: 042
     Dates: start: 20130305, end: 20130305
  36. DIPHENHYDRAMINE. [Concomitant]
     Active Substance: DIPHENHYDRAMINE
     Route: 042
     Dates: start: 20130416, end: 20130416
  37. DOXORUBICIN [Concomitant]
     Active Substance: DOXORUBICIN
     Dosage: STRENGTH: 50MG/M2; DOSE: 91MG
     Route: 042
     Dates: start: 20130305, end: 20130305
  38. CYCLOPHOSPHAMIDE. [Concomitant]
     Active Substance: CYCLOPHOSPHAMIDE
     Dosage: STRENGTH: 500MG/M2; DOSE: 905MG
     Route: 042
     Dates: start: 20130416, end: 20130416
  39. LEUPROLIDE [Concomitant]
     Active Substance: LEUPROLIDE
     Route: 030
     Dates: start: 20130121, end: 20130121
  40. ALTEPLASE. [Concomitant]
     Active Substance: ALTEPLASE
     Route: 042
     Dates: start: 20130326, end: 20130327
  41. ALTEPLASE. [Concomitant]
     Active Substance: ALTEPLASE
     Route: 042
     Dates: start: 20130416, end: 20130416
  42. ALTEPLASE. [Concomitant]
     Active Substance: ALTEPLASE
     Route: 042
     Dates: start: 20130507, end: 20130507
  43. FOSAPREPITANT DIMEGTUMINE [Concomitant]
     Dosage: 150 MILLIGRAM DAILY;
     Route: 042
     Dates: start: 20130121, end: 20130121
  44. ONDANSETRON [Concomitant]
     Active Substance: ONDANSETRON
     Route: 042
     Dates: start: 20130416, end: 20130416
  45. DEXAMETHASONE. [Concomitant]
     Active Substance: DEXAMETHASONE
     Route: 042
     Dates: start: 20130416, end: 20130416
  46. DIPHENHYDRAMINE. [Concomitant]
     Active Substance: DIPHENHYDRAMINE
     Route: 042
     Dates: start: 20130326, end: 20130326
  47. DIPHENHYDRAMINE. [Concomitant]
     Active Substance: DIPHENHYDRAMINE
     Route: 042
     Dates: start: 20130507, end: 20130507
  48. FAMOTIDINE. [Concomitant]
     Active Substance: FAMOTIDINE
     Route: 042
     Dates: start: 20130326, end: 20130326
  49. FAMOTIDINE. [Concomitant]
     Active Substance: FAMOTIDINE
     Route: 042
     Dates: start: 20130507, end: 20130507
  50. DOXORUBICIN [Concomitant]
     Active Substance: DOXORUBICIN
     Dosage: STRENGTH: 50MG/M2; DOSE: 91MG
     Route: 042
     Dates: start: 20130326, end: 20130326
  51. DOCETAXEL ACTAVIS [Suspect]
     Active Substance: DOCETAXEL
     Indication: BREAST CANCER FEMALE
     Dosage: STRENGTH: 75MG/M2; DOSE: 141MG
     Route: 042
     Dates: start: 20130121, end: 20130607
  52. ONDANSETRON [Concomitant]
     Active Substance: ONDANSETRON
     Route: 042
     Dates: start: 20130121, end: 20130121
  53. ONDANSETRON [Concomitant]
     Active Substance: ONDANSETRON
     Route: 042
     Dates: start: 20130507, end: 20130507
  54. FAMOTIDINE. [Concomitant]
     Active Substance: FAMOTIDINE
     Route: 042
     Dates: start: 20130416, end: 20130416
  55. CYCLOPHOSPHAMIDE. [Concomitant]
     Active Substance: CYCLOPHOSPHAMIDE
     Indication: BREAST CANCER FEMALE
     Dosage: STRENGTH: 500MG/M2; DOSE: 905MG
     Route: 042
     Dates: start: 20130121, end: 20130121
  56. HEPARIN [Concomitant]
     Active Substance: HEPARIN SODIUM
     Route: 042
     Dates: start: 20130326, end: 20130327
  57. FOSAPREPITANT DIMEGTUMINE [Concomitant]
     Dosage: 150 MILLIGRAM DAILY;
     Route: 042
     Dates: start: 20130416, end: 20130416
  58. ONDANSETRON [Concomitant]
     Active Substance: ONDANSETRON
     Route: 042
     Dates: start: 20130326, end: 20130326
  59. DEXAMETHASONE. [Concomitant]
     Active Substance: DEXAMETHASONE
     Route: 042
     Dates: start: 20130121, end: 20130121
  60. DOXORUBICIN [Concomitant]
     Active Substance: DOXORUBICIN
     Indication: BREAST CANCER FEMALE
     Dosage: STRENGTH: 50MG/M2; DOSE: 91MG
     Route: 042
     Dates: start: 20130121, end: 20130121

REACTIONS (5)
  - Back pain [Recovered/Resolved]
  - Urinary tract disorder [Unknown]
  - Nausea [Recovered/Resolved]
  - Alopecia areata [Not Recovered/Not Resolved]
  - Madarosis [Not Recovered/Not Resolved]

NARRATIVE: CASE EVENT DATE: 2013
